FAERS Safety Report 21036202 (Version 1)
Quarter: 2022Q3

REPORT INFORMATION
  Report Type: Spontaneous
  Country: US (occurrence: US)
  Receive Date: 20220701
  Receipt Date: 20220701
  Transmission Date: 20221027
  Serious: Yes (Hospitalization, Other)
  Sender: FDA-Public Use
  Company Number: US-OTSUKA-2022_034029

PATIENT
  Age: 41 Year
  Sex: Female
  Weight: 113.4 kg

DRUGS (8)
  1. REXULTI [Suspect]
     Active Substance: BREXPIPRAZOLE
     Indication: Delusion
     Dosage: 1 MG
     Route: 065
     Dates: start: 201909, end: 20220601
  2. REXULTI [Suspect]
     Active Substance: BREXPIPRAZOLE
     Indication: Paranoia
     Dosage: UNK
     Route: 065
  3. REXULTI [Suspect]
     Active Substance: BREXPIPRAZOLE
     Indication: Depression
  4. ABILIFY [Suspect]
     Active Substance: ARIPIPRAZOLE
     Indication: Delusion
     Dosage: 0.5 MG
     Route: 065
     Dates: start: 20220603, end: 20220604
  5. ABILIFY [Suspect]
     Active Substance: ARIPIPRAZOLE
     Indication: Paranoia
  6. HYDROXYZINE [Concomitant]
     Active Substance: HYDROXYZINE HYDROCHLORIDE
     Indication: Anxiety
     Dosage: 5 MG
     Route: 065
  7. NOVOLOG [Concomitant]
     Active Substance: INSULIN ASPART
     Indication: Diabetes mellitus
     Dosage: SLIDING SCALE
     Route: 065
  8. LANTUS [Concomitant]
     Active Substance: INSULIN GLARGINE
     Indication: Diabetes mellitus
     Dosage: 6 UNITS
     Route: 065

REACTIONS (15)
  - Hallucination [Unknown]
  - Delusion [Unknown]
  - Diabetes mellitus [Not Recovered/Not Resolved]
  - Therapy interrupted [Unknown]
  - Psychotic disorder [Unknown]
  - Blood cholesterol increased [Not Recovered/Not Resolved]
  - Hypotension [Not Recovered/Not Resolved]
  - Abnormal dreams [Not Recovered/Not Resolved]
  - Restlessness [Not Recovered/Not Resolved]
  - Weight increased [Not Recovered/Not Resolved]
  - Anxiety [Recovered/Resolved]
  - Somnolence [Recovered/Resolved]
  - Dizziness [Recovered/Resolved]
  - Product use in unapproved indication [Unknown]
  - Product use in unapproved indication [Unknown]

NARRATIVE: CASE EVENT DATE: 20190901
